FAERS Safety Report 14626928 (Version 1)
Quarter: 2018Q1

REPORT INFORMATION
  Report Type: Spontaneous
  Country: JP (occurrence: JP)
  Receive Date: 20180312
  Receipt Date: 20180312
  Transmission Date: 20180509
  Serious: Yes (Other)
  Sender: FDA-Public Use
  Company Number: JP-BAUSCH-BL-2018-006153

PATIENT
  Age: 60 Year
  Sex: Male

DRUGS (3)
  1. VORICONAZOLE. [Concomitant]
     Active Substance: VORICONAZOLE
     Indication: PROPHYLAXIS
     Dosage: 400 MG/BODY
     Route: 048
  2. TACROLIMUS. [Suspect]
     Active Substance: TACROLIMUS
     Indication: PROPHYLAXIS AGAINST GRAFT VERSUS HOST DISEASE
     Route: 065
  3. PREDNISOLONE. [Suspect]
     Active Substance: PREDNISOLONE
     Indication: PROPHYLAXIS AGAINST GRAFT VERSUS HOST DISEASE
     Route: 065

REACTIONS (2)
  - Sinusitis fungal [Recovered/Resolved]
  - Exserohilum infection [Recovered/Resolved]
